FAERS Safety Report 18437693 (Version 2)
Quarter: 2021Q1

REPORT INFORMATION
  Report Type: Report from Study
  Country: US (occurrence: US)
  Receive Date: 20201028
  Receipt Date: 20210223
  Transmission Date: 20210419
  Serious: Yes (Hospitalization, Other)
  Sender: FDA-Public Use
  Company Number: US-SHIRE-US202015794

PATIENT
  Age: 71 Year
  Sex: Female

DRUGS (1)
  1. HUMAN IMMUNOGLOBULIN; HYALURONIDASE [Suspect]
     Active Substance: HUMAN IMMUNOGLOBULIN G\HYALURONIDASE RECOMBINANT HUMAN
     Indication: PRIMARY IMMUNODEFICIENCY SYNDROME
     Dosage: 30 GRAM
     Route: 065

REACTIONS (8)
  - Decreased appetite [Unknown]
  - Bone pain [Unknown]
  - Fatigue [Unknown]
  - Invasive breast carcinoma [Unknown]
  - Arthralgia [Unknown]
  - Malaise [Unknown]
  - Alopecia [Unknown]
  - Skin disorder [Unknown]

NARRATIVE: CASE EVENT DATE: 20200507
